FAERS Safety Report 24623065 (Version 1)
Quarter: 2024Q4

REPORT INFORMATION
  Report Type: Report from Study
  Country: CA (occurrence: CA)
  Receive Date: 20241115
  Receipt Date: 20241115
  Transmission Date: 20250115
  Serious: Yes (Other)
  Sender: SANDOZ
  Company Number: CA-SANDOZ-SDZ2023CA069553

PATIENT
  Age: 49 Year
  Sex: Male

DRUGS (1)
  1. HYRIMOZ [Suspect]
     Active Substance: ADALIMUMAB-ADAZ
     Indication: Ankylosing spondylitis
     Dosage: 40 MG,EVERY 2 TO 3 WEEKS (PRE FILLED SYRINGE)
     Route: 058
     Dates: start: 20220703

REACTIONS (3)
  - Meniscus removal [Unknown]
  - General physical health deterioration [Unknown]
  - Off label use [Unknown]

NARRATIVE: CASE EVENT DATE: 20241104
